FAERS Safety Report 5413900-0 (Version None)
Quarter: 2007Q3

REPORT INFORMATION
  Report Type: 
  Country: None (occurrence: None)
  Receive Date: 20070814
  Receipt Date: 20070731
  Transmission Date: 20080115
  Serious: Yes (Hospitalization)
  Sender: FDA-Public Use
  Company Number: US-ELI_LILLY_AND_COMPANY-US200705005038

PATIENT
  Sex: Female

DRUGS (7)
  1. FORTEO [Suspect]
     Indication: OSTEOPOROSIS
     Dosage: 20 UG, DAILY (1/D)
     Dates: start: 20060901
  2. PREDNISONE TAB [Concomitant]
     Dosage: 10 MG, DAILY (1/D)
  3. COLCHICINE [Concomitant]
     Dosage: 0.6 MG, DAILY (1/D)
  4. VOLTAREN /00372301/ [Concomitant]
     Dosage: 50 MG, 2/D
  5. XANAX [Concomitant]
     Dosage: 0.5 MG, DAILY (1/D)
  6. PAXIL [Concomitant]
     Dosage: 20 MG, UNK
  7. PROTONIX [Concomitant]
     Dosage: 40 MG, UNK

REACTIONS (3)
  - CLAVICLE FRACTURE [None]
  - SCAPULA FRACTURE [None]
  - SHOULDER OPERATION [None]
